FAERS Safety Report 4983340-7 (Version None)
Quarter: 2006Q2

REPORT INFORMATION
  Report Type: 
  Country: None (occurrence: None)
  Receive Date: 20060426
  Receipt Date: 20050621
  Transmission Date: 20061013
  Serious: Yes (Hospitalization, Other)
  Sender: FDA-Public Use
  Company Number: US-MERCK-0506USA03189

PATIENT
  Age: 75 Year
  Sex: Female
  Weight: 78 kg

DRUGS (7)
  1. VIOXX [Suspect]
     Indication: OSTEOARTHRITIS
     Route: 048
     Dates: start: 20031015, end: 20040901
  2. VIOXX [Suspect]
     Indication: PAIN
     Route: 048
     Dates: start: 20031015, end: 20040901
  3. FOSAMAX [Concomitant]
     Route: 065
  4. ELAVIL [Concomitant]
     Route: 048
  5. NEXIUM [Concomitant]
     Route: 065
  6. LIPITOR [Concomitant]
     Route: 065
  7. XALATAN [Concomitant]
     Indication: GLAUCOMA
     Route: 065

REACTIONS (11)
  - AORTIC ARTERIOSCLEROSIS [None]
  - ARTHROPATHY [None]
  - ASTHENIA [None]
  - CLUMSINESS [None]
  - COGNITIVE DISORDER [None]
  - ISCHAEMIC STROKE [None]
  - MEMORY IMPAIRMENT [None]
  - RASH [None]
  - SINUSITIS [None]
  - SYNCOPE [None]
  - TRANSIENT ISCHAEMIC ATTACK [None]
